FAERS Safety Report 10551228 (Version 1)
Quarter: 2014Q4

REPORT INFORMATION
  Report Type: Spontaneous
  Country: US (occurrence: None)
  Receive Date: 20141028
  Receipt Date: 20141028
  Transmission Date: 20150529
  Serious: Yes (Other)
  Sender: FDA-Public Use
  Company Number: None

PATIENT
  Sex: Female

DRUGS (1)
  1. INVEGA [Suspect]
     Active Substance: PALIPERIDONE
     Indication: BLOOD PRESSURE
     Route: 048
     Dates: start: 20070803, end: 20071105

REACTIONS (2)
  - Mental impairment [None]
  - Homicidal ideation [None]
